FAERS Safety Report 12368714 (Version 2)
Quarter: 2017Q2

REPORT INFORMATION
  Report Type: Spontaneous
  Country: US (occurrence: US)
  Receive Date: 20160513
  Receipt Date: 20170516
  Transmission Date: 20170830
  Serious: No
  Sender: FDA-Public Use
  Company Number: US-JNJFOC-20160422204

PATIENT
  Age: 59 Year
  Sex: Female

DRUGS (5)
  1. MENS ROGAINE EXTRA STRENGTH [Suspect]
     Active Substance: MINOXIDIL
     Indication: ALOPECIA
     Dosage: HALF CAPFUL, ABOUT 2 WEEKS AGO
     Route: 061
     Dates: start: 201604
  2. LITHIUM. [Concomitant]
     Active Substance: LITHIUM
     Indication: BIPOLAR DISORDER
     Dosage: DAILY
     Route: 065
  3. MENS ROGAINE EXTRA STRENGTH [Suspect]
     Active Substance: MINOXIDIL
     Indication: ALOPECIA
     Dosage: 2 CAPFULS AND SOMETIMES A LITTLE MORE
     Route: 061
     Dates: end: 20170323
  4. WELLBUTRIN [Concomitant]
     Active Substance: BUPROPION HYDROCHLORIDE
     Indication: BIPOLAR DISORDER
     Route: 065
  5. NEURONTIN [Concomitant]
     Active Substance: GABAPENTIN
     Indication: BIPOLAR DISORDER
     Dosage: DAILY
     Route: 065

REACTIONS (6)
  - Off label use [Unknown]
  - Skin ulcer [Not Recovered/Not Resolved]
  - Product use issue [Unknown]
  - Skin haemorrhage [Not Recovered/Not Resolved]
  - Overdose [Not Recovered/Not Resolved]
  - Scab [Not Recovered/Not Resolved]

NARRATIVE: CASE EVENT DATE: 201604
